FAERS Safety Report 10384254 (Version 1)
Quarter: 2014Q3

REPORT INFORMATION
  Report Type: Spontaneous
  Country: US (occurrence: US)
  Receive Date: 20140814
  Receipt Date: 20140814
  Transmission Date: 20150326
  Serious: No
  Sender: FDA-Public Use
  Company Number: US-009507513-1407USA004235

PATIENT
  Sex: Male

DRUGS (1)
  1. COPPERTONE SPORT SPF 55 [Suspect]
     Active Substance: AVOBENZONE\HOMOSALATE\OCTISALATE\OCTOCRYLENE\OXYBENZONE
     Indication: MALIGNANT MELANOMA
     Dosage: UNK, UNKNOWN
     Route: 061

REACTIONS (3)
  - Product expiration date issue [Unknown]
  - Circumstance or information capable of leading to medication error [Unknown]
  - Off label use [Unknown]
